FAERS Safety Report 8026028 (Version 4)
Quarter: 2013Q4

REPORT INFORMATION
  Report Type: Report from Study
  Country: US (occurrence: US)
  Receive Date: 20110708
  Receipt Date: 20131016
  Transmission Date: 20140711
  Serious: Yes (Other)
  Sender: FDA-Public Use
  Company Number: US-PFIZER INC-2011150002

PATIENT
  Sex: Male

DRUGS (3)
  1. DILANTIN [Suspect]
     Indication: CONVULSION
     Dosage: 300 MG, 2X/DAY
  2. DILANTIN [Suspect]
     Dosage: 600 MG, 2X/DAY
  3. NEURONTIN [Suspect]
     Dosage: UNK

REACTIONS (3)
  - Convulsion [Unknown]
  - Road traffic accident [Unknown]
  - Somnolence [Unknown]
